FAERS Safety Report 7077954-0 (Version None)
Quarter: 2010Q4

REPORT INFORMATION
  Report Type: 
  Country: None (occurrence: None)
  Receive Date: 20101101
  Receipt Date: 20101018
  Transmission Date: 20110411
  Serious: Yes (Death, Hospitalization)
  Sender: FDA-Public Use
  Company Number: AU-AMGEN-AUSSP2010000225

PATIENT

DRUGS (1)
  1. VECTIBIX [Suspect]
     Indication: COLORECTAL CANCER
     Dosage: 4.342 MG, UNK
     Route: 042
     Dates: start: 20100806, end: 20100824

REACTIONS (2)
  - COLORECTAL CANCER [None]
  - HOSPITALISATION [None]
